FAERS Safety Report 11809117 (Version 2)
Quarter: 2016Q1

REPORT INFORMATION
  Report Type: Spontaneous
  Country: IT (occurrence: IT)
  Receive Date: 20151207
  Receipt Date: 20160114
  Transmission Date: 20160525
  Serious: Yes (Death, Other)
  Sender: FDA-Public Use
  Company Number: IT-GILEAD-2015-0185682

PATIENT
  Age: 45 Year
  Sex: Male

DRUGS (11)
  1. MIMPARA [Concomitant]
     Active Substance: CINACALCET HYDROCHLORIDE
     Dosage: 30 MG, QD
  2. DELTACORTENE [Concomitant]
     Active Substance: PREDNISONE
  3. PROGRAF [Concomitant]
     Active Substance: TACROLIMUS\TACROLIMUS ANHYDROUS
  4. COUMADIN [Concomitant]
     Active Substance: WARFARIN SODIUM
     Dosage: 5 MG, UNK
  5. CATAPRESAN                         /00171101/ [Concomitant]
     Active Substance: CLONIDINE
     Dosage: 2.5 UNK, QD
  6. ARANESP [Concomitant]
     Active Substance: DARBEPOETIN ALFA
     Dosage: 50 UG, UNK
  7. SOTALOL                            /00371502/ [Concomitant]
     Dosage: 80 MG, QD
  8. ALLOPURINOL                        /00003302/ [Concomitant]
     Active Substance: ALLOPURINOL
     Dosage: 300 MG, QD
  9. HARVONI [Suspect]
     Active Substance: LEDIPASVIR\SOFOSBUVIR
     Indication: PRODUCT USED FOR UNKNOWN INDICATION
     Dosage: UNK
     Route: 065
  10. PANTORC [Concomitant]
     Active Substance: PANTOPRAZOLE SODIUM
     Dosage: 20 MG, QD
  11. GIANT [Concomitant]
     Active Substance: AMLODIPINE BESYLATE\OLMESARTAN MEDOXOMIL
     Dosage: 50 MG, UNK

REACTIONS (1)
  - Aneurysm ruptured [Fatal]
